FAERS Safety Report 13084529 (Version 1)
Quarter: 2017Q1

REPORT INFORMATION
  Report Type: Spontaneous
  Country: US (occurrence: US)
  Receive Date: 20170102
  Receipt Date: 20170102
  Transmission Date: 20170428
  Serious: Yes (Hospitalization)
  Sender: FDA-Public Use
  Company Number: None

PATIENT
  Age: 74 Year
  Sex: Male
  Weight: 67.8 kg

DRUGS (13)
  1. POTASSIUM CHLORIDE SA (K-DUR, KLOR-CON) [Concomitant]
  2. AVODART [Concomitant]
     Active Substance: DUTASTERIDE
  3. LORAZEPAM (ATIVAN) [Concomitant]
  4. NEOMYCIN-BACITRACIN-POLYMYXIN (NEOSPORIN) [Concomitant]
  5. MEROPENEM. [Suspect]
     Active Substance: MEROPENEM
     Indication: ESCHERICHIA URINARY TRACT INFECTION
     Dosage: INTRAVENOUS (NOT OTHERWISE SPECIFIED)
     Route: 042
     Dates: start: 20161106, end: 20161108
  6. FUROSEMIDE (LAXSIX) [Concomitant]
  7. LEVAQUIN [Concomitant]
     Active Substance: LEVOFLOXACIN
  8. LISINOPRIL-HYDROCHLOROTHIAZIDE (PRINZIDE, ZESTORETIC) [Concomitant]
  9. CERTAVITE  W/ANTIOXIDANTS [Concomitant]
  10. ENOXAPARIN SODIUM (LOVENOX) [Concomitant]
  11. TRAZODONE (DESYRELL) [Concomitant]
  12. PROTONIX [Concomitant]
     Active Substance: PANTOPRAZOLE SODIUM
  13. BUPROPION SR [Concomitant]
     Active Substance: BUPROPION HYDROCHLORIDE
     Indication: DEPRESSION
     Route: 048
     Dates: end: 20161108

REACTIONS (1)
  - Seizure [None]

NARRATIVE: CASE EVENT DATE: 20161108
